FAERS Safety Report 6923259-5 (Version None)
Quarter: 2010Q3

REPORT INFORMATION
  Report Type: 
  Country: None (occurrence: None)
  Receive Date: 20100813
  Receipt Date: 20100802
  Transmission Date: 20110219
  Serious: Yes (Other)
  Sender: FDA-Public Use
  Company Number: US-ROCHE-719791

PATIENT
  Age: 20 Year
  Sex: Female

DRUGS (4)
  1. ISOTRETINOIN [Suspect]
     Indication: MEDULLOBLASTOMA
     Route: 065
  2. VINCRISTINE [Suspect]
     Indication: MEDULLOBLASTOMA
     Route: 065
  3. CISPLATIN [Suspect]
     Indication: MEDULLOBLASTOMA
     Route: 065
  4. CYCLOPHOSPHAMIDE [Suspect]
     Indication: MEDULLOBLASTOMA
     Route: 065

REACTIONS (1)
  - WERNICKE'S ENCEPHALOPATHY [None]
